FAERS Safety Report 8010910-4 (Version None)
Quarter: 2011Q4

REPORT INFORMATION
  Report Type: 
  Country: None (occurrence: None)
  Receive Date: 20111228
  Receipt Date: 20111220
  Transmission Date: 20120403
  Serious: Yes (Other)
  Sender: FDA-Public Use
  Company Number: US-US-EMD SERONO, INC.-7100428

PATIENT
  Sex: Female

DRUGS (3)
  1. UNSPECIFIED INHALER [Concomitant]
     Indication: ASTHMA
  2. REBIF [Suspect]
     Indication: PRODUCT USED FOR UNKNOWN INDICATION
     Route: 058
     Dates: start: 20110915
  3. CLARITIN [Concomitant]
     Indication: HYPERSENSITIVITY

REACTIONS (2)
  - PNEUMONIA [None]
  - MUSCULAR WEAKNESS [None]
